FAERS Safety Report 9857378 (Version 1)
Quarter: 2014Q1

REPORT INFORMATION
  Report Type: Report from Study
  Country: US (occurrence: US)
  Receive Date: 20140131
  Receipt Date: 20140131
  Transmission Date: 20141002
  Serious: Yes (Other)
  Sender: FDA-Public Use
  Company Number: US-ROCHE-1338694

PATIENT
  Sex: Male
  Weight: 30.6 kg

DRUGS (4)
  1. NUTROPIN AQ [Suspect]
     Indication: HYPOPITUITARISM
     Dosage: EVERY NIGHT
     Route: 058
  2. NUTROPIN AQ [Suspect]
     Dosage: EVERY NIGHT
     Route: 058
     Dates: end: 20130717
  3. NUTROPIN AQ [Suspect]
     Dosage: EVERY NIGHT
     Route: 058
     Dates: start: 20130717
  4. SYNTHROID [Concomitant]
     Dosage: EVERY DAY
     Route: 048

REACTIONS (3)
  - Learning disorder [Unknown]
  - Anxiety [Unknown]
  - Pyrexia [Unknown]
